FAERS Safety Report 12669724 (Version 2)
Quarter: 2016Q4

REPORT INFORMATION
  Report Type: Report from Study
  Country: PL (occurrence: PL)
  Receive Date: 20160820
  Receipt Date: 20161012
  Transmission Date: 20170207
  Serious: Yes (Hospitalization, Other)
  Sender: FDA-Public Use
  Company Number: PL-BIOGEN-2016BI00213725

PATIENT
  Age: 34 Year
  Sex: Female
  Weight: 52 kg

DRUGS (17)
  1. DACLIZUMAB HYP [Suspect]
     Active Substance: DACLIZUMAB
     Indication: MULTIPLE SCLEROSIS
     Route: 058
     Dates: start: 2007, end: 20160304
  2. VITAMIN A [Concomitant]
     Active Substance: VITAMIN A
     Indication: DERMATITIS ALLERGIC
  3. VITAMIN E [Concomitant]
     Active Substance: .ALPHA.-TOCOPHEROL
     Indication: DERMATITIS ALLERGIC
  4. CORTINEFF [Concomitant]
     Indication: EYELID RASH
     Route: 061
     Dates: start: 20141105
  5. DITROPAN [Concomitant]
     Active Substance: OXYBUTYNIN CHLORIDE
     Indication: URINARY INCONTINENCE
     Route: 048
     Dates: start: 2008
  6. ELOCOM [Concomitant]
     Active Substance: MOMETASONE FUROATE
     Indication: DERMATITIS ALLERGIC
     Route: 061
     Dates: start: 20160510, end: 20160720
  7. DALACIN C [Concomitant]
     Active Substance: CLINDAMYCIN PHOSPHATE
     Indication: ARTHRITIS
     Route: 048
     Dates: start: 20160302, end: 20160306
  8. YASMIN [Concomitant]
     Active Substance: DROSPIRENONE\ETHINYL ESTRADIOL
     Indication: CONTRACEPTION
     Route: 048
     Dates: start: 20150220, end: 20160225
  9. CLARITINE [Concomitant]
     Active Substance: LORATADINE
     Indication: DERMATITIS ALLERGIC
     Route: 048
     Dates: start: 20160429, end: 20160520
  10. TELFEXO [Concomitant]
     Active Substance: FEXOFENADINE HYDROCHLORIDE
     Indication: DERMATITIS ALLERGIC
     Route: 048
     Dates: start: 20160701
  11. CLEMASTIN [Concomitant]
     Active Substance: CLEMASTINE
     Indication: DERMATITIS ALLERGIC
     Route: 048
     Dates: start: 20160520, end: 20160720
  12. NIFUROKSAZYD [Concomitant]
     Indication: GASTROENTERITIS
     Route: 048
     Dates: start: 20151118, end: 20151118
  13. SERONIL [Concomitant]
     Active Substance: FLUOXETINE HYDROCHLORIDE
     Indication: DEPRESSION
     Route: 048
     Dates: start: 20160429, end: 20160520
  14. SERONIL [Concomitant]
     Active Substance: FLUOXETINE HYDROCHLORIDE
     Route: 048
     Dates: start: 20160521
  15. HYDROXYZINUM [Concomitant]
     Active Substance: HYDROXYZINE HYDROCHLORIDE
     Indication: DERMATITIS ALLERGIC
     Route: 048
     Dates: start: 20160616, end: 20160715
  16. PREDNISOLONE. [Concomitant]
     Active Substance: PREDNISOLONE
     Indication: DERMATITIS ALLERGIC
     Route: 061
     Dates: start: 20160429, end: 20160508
  17. DIPROPHOS [Concomitant]
     Active Substance: BECLOMETHASONE DIPROPIONATE\BETAMETHASONE SODIUM PHOSPHATE
     Indication: ARTHRITIS
     Route: 014
     Dates: start: 20160311, end: 20160311

REACTIONS (1)
  - Arthritis reactive [Not Recovered/Not Resolved]

NARRATIVE: CASE EVENT DATE: 20160321
